FAERS Safety Report 12277831 (Version 1)
Quarter: 2016Q2

REPORT INFORMATION
  Report Type: Spontaneous
  Country: US (occurrence: US)
  Receive Date: 20160418
  Receipt Date: 20160418
  Transmission Date: 20160815
  Serious: No
  Sender: FDA-Public Use
  Company Number: US-BIOGEN-2016BI00215536

PATIENT
  Sex: Male

DRUGS (2)
  1. AVONEX [Suspect]
     Active Substance: INTERFERON BETA-1A
     Indication: MULTIPLE SCLEROSIS
     Route: 065
     Dates: start: 20020415, end: 20141225
  2. PLEGRIDY [Suspect]
     Active Substance: PEGINTERFERON BETA-1A
     Indication: MULTIPLE SCLEROSIS
     Route: 065
     Dates: start: 20150101, end: 20150212

REACTIONS (10)
  - Arthralgia [Unknown]
  - Ligament sprain [Unknown]
  - Musculoskeletal pain [Unknown]
  - Balance disorder [Unknown]
  - Back pain [Unknown]
  - Spinal disorder [Unknown]
  - Musculoskeletal disorder [Unknown]
  - Mobility decreased [Unknown]
  - Hypoaesthesia [Unknown]
  - Back disorder [Unknown]
